FAERS Safety Report 8055298-8 (Version None)
Quarter: 2011Q4

REPORT INFORMATION
  Report Type: 
  Country: None (occurrence: None)
  Receive Date: 20111213
  Receipt Date: 20111027
  Transmission Date: 20120403
  Serious: Yes (Other)
  Sender: FDA-Public Use
  Company Number: 2011SP051094

PATIENT
  Age: 20 Year
  Sex: Female

DRUGS (3)
  1. SAPHRIS [Suspect]
     Indication: BIPOLAR DISORDER
     Dosage: SL
     Route: 060
  2. SAPHRIS [Suspect]
     Indication: SCHIZOPHRENIA
     Dosage: SL
     Route: 060
  3. BUPROPION HYDROCHLORIDE [Suspect]
     Indication: PRODUCT USED FOR UNKNOWN INDICATION

REACTIONS (2)
  - AKATHISIA [None]
  - EXTRAPYRAMIDAL DISORDER [None]
